FAERS Safety Report 23333742 (Version 2)
Quarter: 2024Q4

REPORT INFORMATION
  Report Type: Spontaneous
  Country: US (occurrence: US)
  Receive Date: 20231223
  Receipt Date: 20241217
  Transmission Date: 20250114
  Serious: No
  Sender: DR REDDYS
  Company Number: US-E2BLSMVVAL-SPO/USA/23/0032537

PATIENT
  Age: 31 Year
  Sex: Female
  Weight: 82 kg

DRUGS (5)
  1. JAVYGTOR [Suspect]
     Active Substance: SAPROPTERIN DIHYDROCHLORIDE
     Indication: Hyperphenylalaninaemia
     Dosage: DISSOLVE THREE 500 POWDER PACKETS WITH ONE 100 MG POWDER PACKET IN 4 TO 8 OUNCES OF WATER OR APPLE J
     Route: 048
  2. JAVYGTOR [Suspect]
     Active Substance: SAPROPTERIN DIHYDROCHLORIDE
     Indication: Phenylketonuria
  3. JAVYGTOR [Suspect]
     Active Substance: SAPROPTERIN DIHYDROCHLORIDE
     Indication: Hyperphenylalaninaemia
     Dosage: ONE 100 MG POWDER PACKET WITH THREE 500 MG POWDER PACKETS BY MOUTH
     Route: 048
  4. JAVYGTOR [Suspect]
     Active Substance: SAPROPTERIN DIHYDROCHLORIDE
     Indication: Phenylketonuria
     Dosage: 100 MG PACKET 30^S LOT, DISSOLVE THREE 500 POWDER PACKETS WITH ONE 100 MG POWDER PACKET IN 4 TO 8 OU
     Route: 048
  5. PROZAC [Concomitant]
     Active Substance: FLUOXETINE HYDROCHLORIDE
     Indication: Product used for unknown indication
     Route: 065

REACTIONS (3)
  - Exposure during pregnancy [Unknown]
  - Treatment noncompliance [Unknown]
  - Feeling abnormal [Unknown]
